FAERS Safety Report 24988129 (Version 1)
Quarter: 2025Q1

REPORT INFORMATION
  Report Type: Spontaneous
  Country: DE (occurrence: DE)
  Receive Date: 20250220
  Receipt Date: 20250220
  Transmission Date: 20250408
  Serious: Yes (Other)
  Sender: AMGEN
  Company Number: DE-AMGEN-DEUSP2025027068

PATIENT

DRUGS (1)
  1. PREDNISONE [Suspect]
     Active Substance: PREDNISONE
     Indication: Adrenogenital syndrome
     Route: 065

REACTIONS (11)
  - Abortion spontaneous [Unknown]
  - Abortion induced [Unknown]
  - Cervical incompetence [Unknown]
  - Pre-eclampsia [Unknown]
  - Gestational diabetes [Unknown]
  - Gestational hypertension [Unknown]
  - Obstructed labour [Unknown]
  - Foetal monitoring abnormal [Unknown]
  - Uterine hypotonus [Unknown]
  - Premature delivery [Unknown]
  - Prolonged pregnancy [Unknown]
